FAERS Safety Report 25383633 (Version 6)
Quarter: 2025Q3

REPORT INFORMATION
  Report Type: Report from Study
  Country: CA (occurrence: CA)
  Receive Date: 20250602
  Receipt Date: 20250919
  Transmission Date: 20251020
  Serious: Yes (Other)
  Sender: TAKEDA
  Company Number: CA-TAKEDA-2024TUS041411

PATIENT
  Age: 48 Year
  Sex: Male

DRUGS (10)
  1. VEDOLIZUMAB [Suspect]
     Active Substance: VEDOLIZUMAB
     Indication: Colitis ulcerative
  2. VEDOLIZUMAB [Suspect]
     Active Substance: VEDOLIZUMAB
  3. VEDOLIZUMAB [Suspect]
     Active Substance: VEDOLIZUMAB
  4. VEDOLIZUMAB [Suspect]
     Active Substance: VEDOLIZUMAB
  5. VEDOLIZUMAB [Suspect]
     Active Substance: VEDOLIZUMAB
  6. VEDOLIZUMAB [Suspect]
     Active Substance: VEDOLIZUMAB
  7. VEDOLIZUMAB [Suspect]
     Active Substance: VEDOLIZUMAB
  8. VEDOLIZUMAB [Suspect]
     Active Substance: VEDOLIZUMAB
     Dosage: 300 MILLIGRAM, Q4WEEKS
     Dates: start: 20250915
  9. MESALAMINE [Suspect]
     Active Substance: MESALAMINE
     Indication: Product used for unknown indication
  10. Salofalk [Concomitant]

REACTIONS (14)
  - Haematochezia [Recovering/Resolving]
  - Colitis [Unknown]
  - Anxiety [Unknown]
  - Nervousness [Unknown]
  - Gastrointestinal sounds abnormal [Unknown]
  - Migraine [Unknown]
  - Drug ineffective [Unknown]
  - Mucous stools [Recovering/Resolving]
  - Gastrointestinal motility disorder [Recovering/Resolving]
  - Diarrhoea [Recovering/Resolving]
  - Abdominal pain [Unknown]
  - Constipation [Unknown]
  - Flatulence [Unknown]
  - Off label use [Unknown]

NARRATIVE: CASE EVENT DATE: 20250915
